FAERS Safety Report 9011382 (Version 1)
Quarter: 2013Q1

REPORT INFORMATION
  Report Type: Spontaneous
  Country: US (occurrence: US)
  Receive Date: 20130108
  Receipt Date: 20130108
  Transmission Date: 20140127
  Serious: No
  Sender: FDA-Public Use
  Company Number: US-PFIZER INC-2013004952

PATIENT
  Age: 41 Year
  Sex: Female
  Weight: 55 kg

DRUGS (1)
  1. ADVIL MIGRAINE [Suspect]
     Indication: MIGRAINE
     Dosage: TWO CAPSULES OF 200MG, 1X/DAY
     Route: 048
     Dates: start: 20121231, end: 201301

REACTIONS (2)
  - Vertigo [Recovered/Resolved]
  - Feeling abnormal [Recovered/Resolved]
